FAERS Safety Report 17834731 (Version 1)
Quarter: 2020Q2

REPORT INFORMATION
  Report Type: Spontaneous
  Country: CA (occurrence: CA)
  Receive Date: 20200528
  Receipt Date: 20200528
  Transmission Date: 20200714
  Serious: Yes (Disabling, Other)
  Sender: FDA-Public Use
  Company Number: CA-ADVANZ PHARMA-GSH201811-003897

PATIENT

DRUGS (12)
  1. SULFASALAZINE. [Suspect]
     Active Substance: SULFASALAZINE
     Indication: POLYARTHRITIS
     Dosage: UNK
     Route: 065
  2. TOCILIZUMAB. [Suspect]
     Active Substance: TOCILIZUMAB
     Indication: JUVENILE IDIOPATHIC ARTHRITIS
     Dosage: UNK
     Route: 065
  3. INFLIXIMAB [Suspect]
     Active Substance: INFLIXIMAB
     Indication: JUVENILE IDIOPATHIC ARTHRITIS
     Dosage: 200 MG, WEEKLY
     Route: 065
     Dates: start: 201408
  4. ADALIMUMAB [Suspect]
     Active Substance: ADALIMUMAB
     Indication: JUVENILE IDIOPATHIC ARTHRITIS
     Dosage: 40 MG, WEEKLY
     Route: 058
     Dates: start: 201105, end: 201406
  5. METHOTREXATE. [Suspect]
     Active Substance: METHOTREXATE
     Indication: POLYARTHRITIS
     Dosage: 15 MG/M2, UNK
     Route: 058
     Dates: start: 20080918, end: 2013
  6. ABATACEPT [Suspect]
     Active Substance: ABATACEPT
     Indication: POLYARTHRITIS
  7. ABATACEPT [Suspect]
     Active Substance: ABATACEPT
     Indication: JUVENILE IDIOPATHIC ARTHRITIS
     Dosage: UNK
     Route: 065
  8. TOCILIZUMAB. [Suspect]
     Active Substance: TOCILIZUMAB
     Indication: POLYARTHRITIS
  9. RITUXIMAB. [Suspect]
     Active Substance: RITUXIMAB
     Indication: JUVENILE IDIOPATHIC ARTHRITIS
     Dosage: 420 MG, UNK
     Route: 042
     Dates: start: 201105, end: 201105
  10. LEFLUNOMIDE. [Suspect]
     Active Substance: LEFLUNOMIDE
     Indication: POLYARTHRITIS
     Dosage: UNK
     Route: 048
  11. ETANERCEPT [Suspect]
     Active Substance: ETANERCEPT
     Indication: JUVENILE IDIOPATHIC ARTHRITIS
     Dosage: 15 MG, FREQ: UNK X 1 WEEKS
     Route: 065
     Dates: start: 20090102, end: 20100209
  12. HYDROXYCHLOROQUINE SULFATE (AUTHORIZED GENERIC),PLAQUENIL [Suspect]
     Active Substance: HYDROXYCHLOROQUINE SULFATE
     Indication: POLYARTHRITIS
     Dosage: UNK
     Route: 065

REACTIONS (27)
  - C-reactive protein increased [Unknown]
  - Joint effusion [Unknown]
  - White blood cell count increased [Unknown]
  - Application site pain [Unknown]
  - Joint destruction [Unknown]
  - Mean cell haemoglobin decreased [Unknown]
  - Mean platelet volume decreased [Unknown]
  - Osteoarthritis [Not Recovered/Not Resolved]
  - Red blood cell sedimentation rate [Unknown]
  - Disability [Unknown]
  - Contraindicated product administered [Unknown]
  - Platelet count increased [Unknown]
  - Arthropathy [Unknown]
  - Musculoskeletal deformity [Not Recovered/Not Resolved]
  - Infusion site reaction [Unknown]
  - Juvenile idiopathic arthritis [Unknown]
  - Mean cell volume decreased [Unknown]
  - Monocyte count increased [Unknown]
  - General physical health deterioration [Not Recovered/Not Resolved]
  - Infusion related reaction [Unknown]
  - Red cell distribution width decreased [Unknown]
  - Vascular access complication [Unknown]
  - Physical disability [Not Recovered/Not Resolved]
  - Deformity [Unknown]
  - Drug ineffective [Unknown]
  - Arthritis [Unknown]
  - Treatment failure [Unknown]
